FAERS Safety Report 5019176-0 (Version None)
Quarter: 2006Q2

REPORT INFORMATION
  Report Type: 
  Country: None (occurrence: None)
  Receive Date: 20060531
  Receipt Date: 20060515
  Transmission Date: 20061013
  Serious: Yes (Life-Threatening)
  Sender: FDA-Public Use
  Company Number: 2006RR-02317

PATIENT
  Age: 57 Year
  Sex: Female

DRUGS (3)
  1. AMOXICILLIN [Suspect]
     Indication: LOWER RESPIRATORY TRACT INFECTION
     Dosage: 250 MG, ORAL
     Route: 048
     Dates: start: 20060503, end: 20060503
  2. PREMIQUE [Concomitant]
  3. PREMIQUE [Concomitant]

REACTIONS (1)
  - ANAPHYLACTIC REACTION [None]
